FAERS Safety Report 6120277-4 (Version None)
Quarter: 2009Q1

REPORT INFORMATION
  Report Type: 
  Country: None (occurrence: None)
  Receive Date: 20090312
  Receipt Date: 20090224
  Transmission Date: 20090719
  Serious: Yes (Other)
  Sender: FDA-Public Use
  Company Number: ALA_00259_2009

PATIENT
  Sex: Female

DRUGS (14)
  1. REGLAN [Suspect]
     Indication: IMPAIRED GASTRIC EMPTYING
     Dosage: 10 MG TID ORAL
     Route: 048
     Dates: start: 20041222, end: 20080101
  2. METOPROLOL TARTRATE [Concomitant]
  3. HYDROCHLOROTIAZIDE [Concomitant]
  4. LISINOPRIL [Concomitant]
  5. PREVACID [Concomitant]
  6. HUMALOG [Concomitant]
  7. LANTUS [Concomitant]
  8. CLONAZEPAM [Concomitant]
  9. SIMVASTIN-MEPHRA [Concomitant]
  10. TYLENOL W/ CODEINE [Concomitant]
  11. DOVONEX [Concomitant]
  12. PROVENTIL /00139501/ [Concomitant]
  13. ASPIRIN [Concomitant]
  14. DOCUSATE [Concomitant]

REACTIONS (5)
  - HEADACHE [None]
  - HYPERTENSION [None]
  - MUSCLE ATROPHY [None]
  - PARKINSON'S DISEASE [None]
  - SALIVARY HYPERSECRETION [None]
